FAERS Safety Report 10166442 (Version 1)
Quarter: 2014Q2

REPORT INFORMATION
  Report Type: Spontaneous
  Country: US (occurrence: US)
  Receive Date: 20140512
  Receipt Date: 20140512
  Transmission Date: 20141212
  Serious: Yes (Other)
  Sender: FDA-Public Use
  Company Number: US-BAYER-2014-068121

PATIENT
  Age: 46 Year
  Sex: Female

DRUGS (6)
  1. YASMIN [Suspect]
     Dosage: UNK
     Dates: start: 200512, end: 200601
  2. YAZ [Suspect]
     Dosage: UNK
     Dates: start: 200512, end: 200601
  3. BEYAZ [Suspect]
     Dosage: UNK
     Dates: start: 200512, end: 200601
  4. OCELLA [Suspect]
     Dosage: UNK
     Dates: start: 200512, end: 200601
  5. GIANVI [Suspect]
     Dosage: UNK
     Dates: start: 200512, end: 200601
  6. SAFYRAL [Suspect]
     Dosage: UNK
     Dates: start: 200512, end: 200601

REACTIONS (3)
  - Pulmonary embolism [None]
  - Deep vein thrombosis [None]
  - Injury [None]
